FAERS Safety Report 7638899-8 (Version None)
Quarter: 2011Q3

REPORT INFORMATION
  Report Type: 
  Country: None (occurrence: None)
  Receive Date: 20110721
  Receipt Date: 20110706
  Transmission Date: 20111222
  Serious: Yes (Other)
  Sender: FDA-Public Use
  Company Number: 2011SP031994

PATIENT
  Age: 10 Year
  Sex: Male

DRUGS (7)
  1. CHILDREN'S CLARITIN [Suspect]
     Indication: SNEEZING
     Dosage: 5 MG;ONCE;PO
     Route: 048
     Dates: start: 20110628
  2. CHILDREN'S CLARITIN [Suspect]
     Indication: LACRIMATION INCREASED
     Dosage: 5 MG;ONCE;PO
     Route: 048
     Dates: start: 20110628
  3. CHILDREN'S CLARITIN [Suspect]
     Indication: PRURITUS
     Dosage: 5 MG;ONCE;PO
     Route: 048
     Dates: start: 20110628
  4. CHILDREN'S CLARITIN [Suspect]
     Indication: EYE PRURITUS
     Dosage: 5 MG;ONCE;PO
     Route: 048
     Dates: start: 20110628
  5. CHILDREN'S CLARITIN [Suspect]
     Indication: HYPERSENSITIVITY
     Dosage: 5 MG;ONCE;PO
     Route: 048
     Dates: start: 20110628
  6. CHILDREN'S CLARITIN [Suspect]
     Indication: THROAT IRRITATION
     Dosage: 5 MG;ONCE;PO
     Route: 048
     Dates: start: 20110628
  7. CHILDREN'S CLARITIN [Suspect]
     Indication: NASAL CONGESTION
     Dosage: 5 MG;ONCE;PO
     Route: 048
     Dates: start: 20110628

REACTIONS (3)
  - CRYING [None]
  - HALLUCINATION [None]
  - TREMOR [None]
